FAERS Safety Report 25468150 (Version 1)
Quarter: 2025Q2

REPORT INFORMATION
  Report Type: Spontaneous
  Country: US (occurrence: US)
  Receive Date: 20250623
  Receipt Date: 20250623
  Transmission Date: 20250717
  Serious: No
  Sender: KYOWA
  Company Number: US-KYOWAKIRIN-2025KK011722

PATIENT

DRUGS (2)
  1. NOURIANZ [Suspect]
     Active Substance: ISTRADEFYLLINE
     Indication: Parkinson^s disease
     Dosage: 20MG ONCE A DAY
     Route: 065
  2. NOURIANZ [Suspect]
     Active Substance: ISTRADEFYLLINE
     Indication: On and off phenomenon

REACTIONS (1)
  - Dyspnoea [Unknown]
